FAERS Safety Report 5275798-3 (Version None)
Quarter: 2007Q1

REPORT INFORMATION
  Report Type: 
  Country: None (occurrence: None)
  Receive Date: 20070326
  Receipt Date: 20070315
  Transmission Date: 20070707
  Serious: Yes (Death, Congenital Anomaly)
  Sender: FDA-Public Use
  Company Number: BW-GLAXOSMITHKLINE-B0463185A

PATIENT
  Age: 1 Day
  Sex: Male
  Weight: 3 kg

DRUGS (5)
  1. ZIDOVUDINE [Suspect]
     Indication: ANTIVIRAL PROPHYLAXIS
     Dosage: 4MGK TWICE PER DAY
     Route: 048
     Dates: start: 20061214
  2. NEVIRAPINE [Suspect]
     Indication: ANTIVIRAL PROPHYLAXIS
     Dosage: 6MG SINGLE DOSE
     Route: 048
     Dates: start: 20061214, end: 20061214
  3. COMBIVIR [Suspect]
     Indication: ANTIVIRAL PROPHYLAXIS
     Dosage: 1TAB TWICE PER DAY
     Dates: start: 20061023
  4. ZIDOVUDINE [Suspect]
     Dates: start: 20061214
  5. KALETRA [Suspect]
     Indication: ANTIVIRAL PROPHYLAXIS
     Dosage: 3CAP TWICE PER DAY
     Dates: start: 20061023

REACTIONS (3)
  - CYANOSIS [None]
  - HYDROCEPHALUS [None]
  - RESPIRATORY DISTRESS [None]
